FAERS Safety Report 6132692-3 (Version None)
Quarter: 2009Q1

REPORT INFORMATION
  Report Type: 
  Country: None (occurrence: None)
  Receive Date: 20090326
  Receipt Date: 20090318
  Transmission Date: 20090719
  Serious: Yes (Other)
  Sender: FDA-Public Use
  Company Number: US-RANBAXY-2009US-22085

PATIENT

DRUGS (4)
  1. ISOTRETINOIN [Suspect]
     Indication: DRUG USE FOR UNKNOWN INDICATION
     Dosage: 20 MG, BID
     Route: 048
     Dates: start: 20080321, end: 20081201
  2. ISOTRETINOIN [Suspect]
     Dosage: 20 MG, QD
     Route: 048
     Dates: start: 20080118, end: 20080101
  3. ISOTRETINOIN [Suspect]
     Dosage: UNK
  4. ISOTRETINOIN [Suspect]
     Dosage: 40 MG, QD
     Route: 048
     Dates: start: 20080805, end: 20081201

REACTIONS (1)
  - PREGNANCY [None]
